FAERS Safety Report 23601124 (Version 2)
Quarter: 2024Q1

REPORT INFORMATION
  Report Type: Spontaneous
  Country: US (occurrence: US)
  Receive Date: 20240306
  Receipt Date: 20240328
  Transmission Date: 20240410
  Serious: Yes (Death, Hospitalization)
  Sender: FDA-Public Use
  Company Number: US-PFIZER INC-2020441438

PATIENT
  Age: 76 Year
  Sex: Female
  Weight: 44.45 kg

DRUGS (4)
  1. PREMPRO [Suspect]
     Active Substance: ESTROGENS, CONJUGATED\MEDROXYPROGESTERONE ACETATE
     Indication: Menopause
     Dosage: LOW DOSE, 1X/DAY
  2. PREMPRO [Suspect]
     Active Substance: ESTROGENS, CONJUGATED\MEDROXYPROGESTERONE ACETATE
     Indication: Menopausal symptoms
     Dosage: 1 DF, ALTERNATE DAY [SHE STARTED TAKING ONE EVERY OTHER DAY FOR A LITTLE WHILE]
  3. PREMPRO [Suspect]
     Active Substance: ESTROGENS, CONJUGATED\MEDROXYPROGESTERONE ACETATE
     Indication: Osteoporosis postmenopausal
     Dosage: 1 TABLET, DAILY(0.3-1.5 MG PER TABLET)
     Route: 048
  4. PREMPRO [Suspect]
     Active Substance: ESTROGENS, CONJUGATED\MEDROXYPROGESTERONE ACETATE
     Indication: Hormone replacement therapy

REACTIONS (3)
  - Progressive multifocal leukoencephalopathy [Fatal]
  - Product prescribing issue [Unknown]
  - Intentional product misuse [Unknown]
